FAERS Safety Report 19203736 (Version 1)
Quarter: 2021Q2

REPORT INFORMATION
  Report Type: Spontaneous
  Country: US (occurrence: US)
  Receive Date: 20210430
  Receipt Date: 20210430
  Transmission Date: 20210717
  Serious: Yes (Hospitalization)
  Sender: FDA-Public Use
  Company Number: US-TEVA-2021-US-1905173

PATIENT
  Age: 87 Year
  Weight: 78.02 kg

DRUGS (16)
  1. QVAR REDIHALER [Suspect]
     Active Substance: BECLOMETHASONE DIPROPIONATE
     Indication: HYPERSENSITIVITY
  2. VITAMIN D [Concomitant]
     Active Substance: VITAMIN D NOS
  3. ASPIRIN 81 [Concomitant]
     Active Substance: ASPIRIN
  4. PRISTIQ EXTENDED?RELEASE [Concomitant]
     Active Substance: DESVENLAFAXINE SUCCINATE
  5. TURMERIC FORTE [Concomitant]
  6. METOPROLOL. [Concomitant]
     Active Substance: METOPROLOL
  7. AMLODIPINE [Concomitant]
     Active Substance: AMLODIPINE BESYLATE
  8. VITAMIN C [Concomitant]
     Active Substance: ASCORBIC ACID
  9. FLONASE [Concomitant]
     Active Substance: FLUTICASONE PROPIONATE
  10. QVAR REDIHALER [Suspect]
     Active Substance: BECLOMETHASONE DIPROPIONATE
     Indication: BRONCHITIS
     Dosage: 2 PUFFS IN THE MORNING AND 1 PUFF IN THE EVENING
     Route: 065
  11. FOLATE [Concomitant]
     Active Substance: FOLATE SODIUM
  12. DIOVAN HCT [Concomitant]
     Active Substance: HYDROCHLOROTHIAZIDE\VALSARTAN
  13. PROBIOTIC [Concomitant]
     Active Substance: PROBIOTICS NOS
  14. MULTIVITAMIN [Concomitant]
     Active Substance: VITAMINS
  15. ATORVASTATIN CALCIUM. [Concomitant]
     Active Substance: ATORVASTATIN CALCIUM
  16. COENZYME Q10 [Concomitant]
     Active Substance: DIETARY SUPPLEMENT\UBIDECARENONE

REACTIONS (3)
  - Hypertension [Unknown]
  - Wrong technique in product usage process [Unknown]
  - Myocardial infarction [Unknown]

NARRATIVE: CASE EVENT DATE: 2014
